FAERS Safety Report 17549342 (Version 8)
Quarter: 2020Q4

REPORT INFORMATION
  Report Type: Report from Study
  Country: FR (occurrence: FR)
  Receive Date: 20200317
  Receipt Date: 20201217
  Transmission Date: 20210113
  Serious: Yes (Hospitalization, Other)
  Sender: FDA-Public Use
  Company Number: NVSC2020FR068930

PATIENT
  Age: 45 Year
  Sex: Male
  Weight: 105 kg

DRUGS (27)
  1. ADOPORT [Suspect]
     Active Substance: TACROLIMUS
     Dosage: 14 MG
     Route: 048
     Dates: start: 20190704, end: 20190705
  2. ADOPORT [Suspect]
     Active Substance: TACROLIMUS
     Dosage: 8 MG
     Route: 048
     Dates: start: 20190719, end: 20190730
  3. ADOPORT [Suspect]
     Active Substance: TACROLIMUS
     Dosage: 5 MG
     Route: 048
     Dates: start: 20191016, end: 20200118
  4. BACTRIM [Concomitant]
     Active Substance: SULFAMETHOXAZOLE\TRIMETHOPRIM
     Indication: PRODUCT USED FOR UNKNOWN INDICATION
     Dosage: UNK
     Route: 065
     Dates: start: 20190705
  5. ACUPAN [Concomitant]
     Active Substance: NEFOPAM HYDROCHLORIDE
     Indication: PRODUCT USED FOR UNKNOWN INDICATION
     Dosage: UNK
     Route: 065
     Dates: start: 20190703, end: 20190706
  6. ADOPORT [Suspect]
     Active Substance: TACROLIMUS
     Indication: RENAL TRANSPLANT
     Dosage: 10 MG
     Route: 048
     Dates: start: 20190703, end: 20190703
  7. ADOPORT [Suspect]
     Active Substance: TACROLIMUS
     Dosage: 4 MG
     Route: 048
     Dates: start: 20200229
  8. PANTOPRAZOLE [Concomitant]
     Active Substance: PANTOPRAZOLE
     Indication: PRODUCT USED FOR UNKNOWN INDICATION
     Dosage: UNK
     Route: 065
     Dates: start: 20190705
  9. AMLOR [Concomitant]
     Active Substance: AMLODIPINE BESYLATE
     Indication: PRODUCT USED FOR UNKNOWN INDICATION
     Dosage: UNK
     Route: 065
     Dates: start: 20190705
  10. ADOPORT [Suspect]
     Active Substance: TACROLIMUS
     Dosage: 7 MG
     Route: 048
     Dates: start: 20190705, end: 20190706
  11. BACTRIM [Concomitant]
     Active Substance: SULFAMETHOXAZOLE\TRIMETHOPRIM
     Indication: PRODUCT USED FOR UNKNOWN INDICATION
     Dosage: 800 MG (IN THE MORING ON MONDAY, WEDNESDAY AND FRIDAY)
     Route: 065
     Dates: start: 20190715, end: 20200117
  12. XANAX [Concomitant]
     Active Substance: ALPRAZOLAM
     Indication: PRODUCT USED FOR UNKNOWN INDICATION
     Dosage: UNK
     Route: 065
     Dates: start: 20190707
  13. ADOPORT [Suspect]
     Active Substance: TACROLIMUS
     Dosage: 6.5 MG
     Route: 048
     Dates: start: 20190807, end: 20190814
  14. ADOPORT [Suspect]
     Active Substance: TACROLIMUS
     Dosage: 4.5 MG
     Route: 048
     Dates: start: 20200118
  15. IMOVANE [Concomitant]
     Active Substance: ZOPICLONE
     Indication: PRODUCT USED FOR UNKNOWN INDICATION
     Dosage: UNK
     Route: 065
     Dates: start: 20190704
  16. EUPRESSYL [Concomitant]
     Active Substance: URAPIDIL
     Indication: PRODUCT USED FOR UNKNOWN INDICATION
     Dosage: UNK
     Route: 065
     Dates: start: 20190711
  17. ATARAX [Concomitant]
     Active Substance: HYDROXYZINE HYDROCHLORIDE
     Indication: PRODUCT USED FOR UNKNOWN INDICATION
     Dosage: UNK
     Route: 065
     Dates: start: 20190710
  18. ROVALCYTE [Concomitant]
     Active Substance: VALGANCICLOVIR HYDROCHLORIDE
     Indication: PRODUCT USED FOR UNKNOWN INDICATION
     Dosage: 450 MG (MORNING AND EVENING)
     Route: 065
     Dates: start: 20190515, end: 20200227
  19. ADOPORT [Suspect]
     Active Substance: TACROLIMUS
     Dosage: 7 MG
     Route: 048
     Dates: start: 20190703, end: 20190704
  20. ADOPORT [Suspect]
     Active Substance: TACROLIMUS
     Dosage: 9 MG
     Route: 048
     Dates: start: 20190710, end: 20190719
  21. ADOPORT [Suspect]
     Active Substance: TACROLIMUS
     Dosage: 7 MG
     Route: 048
     Dates: start: 20190730, end: 20190807
  22. ADOPORT [Suspect]
     Active Substance: TACROLIMUS
     Dosage: 6 MG
     Route: 048
     Dates: start: 20190814, end: 20191016
  23. TEMERIT [Concomitant]
     Active Substance: NEBIVOLOL
     Indication: PRODUCT USED FOR UNKNOWN INDICATION
     Dosage: UNK
     Route: 065
     Dates: start: 20190703
  24. ADOPORT [Suspect]
     Active Substance: TACROLIMUS
     Dosage: 10 MG
     Route: 048
     Dates: start: 20190706, end: 20190710
  25. DOLIPRANE [Concomitant]
     Active Substance: ACETAMINOPHEN
     Indication: PRODUCT USED FOR UNKNOWN INDICATION
     Dosage: UNK
     Route: 065
     Dates: start: 20190704, end: 20190708
  26. ADOPORT [Suspect]
     Active Substance: TACROLIMUS
     Dosage: 5 MG
     Route: 048
     Dates: start: 20200707
  27. CELLCEPT [Concomitant]
     Active Substance: MYCOPHENOLATE MOFETIL\MYCOPHENOLATE MOFETIL HYDROCHLORIDE
     Indication: PRODUCT USED FOR UNKNOWN INDICATION
     Dosage: UNK
     Route: 065
     Dates: start: 20190703

REACTIONS (15)
  - Transplant rejection [Recovered/Resolved]
  - Asthenia [Recovered/Resolved]
  - Depression [Recovering/Resolving]
  - Neutropenia [Recovered/Resolved]
  - Carbohydrate metabolism disorder [Recovered/Resolved]
  - Leukopenia [Recovered/Resolved]
  - Oedema peripheral [Recovered/Resolved]
  - Acidosis [Recovered/Resolved]
  - Chronic kidney disease [Recovered/Resolved]
  - Sleep disorder [Recovering/Resolving]
  - Tremor [Recovered/Resolved]
  - Dyspnoea [Recovered/Resolved]
  - Asthenia [Recovered/Resolved]
  - Oedema peripheral [Recovered/Resolved]
  - Overdose [Recovered/Resolved]

NARRATIVE: CASE EVENT DATE: 20190705
